FAERS Safety Report 8998069 (Version 1)
Quarter: 2013Q1

REPORT INFORMATION
  Report Type: Spontaneous
  Country: NL (occurrence: NL)
  Receive Date: 20130104
  Receipt Date: 20130104
  Transmission Date: 20140127
  Serious: Yes (Death, Hospitalization, Other)
  Sender: FDA-Public Use
  Company Number: NL-AMGEN-NLDSP2012073701

PATIENT
  Age: 75 Year
  Sex: Male

DRUGS (7)
  1. ENBREL [Suspect]
     Indication: RHEUMATOID ARTHRITIS
     Dosage: 50 MG, WEEKLY
     Dates: start: 201208
  2. MELOXICAM [Concomitant]
     Dosage: UNK
  3. MTX                                /00113802/ [Concomitant]
     Dosage: UNK
  4. OMEPRAZOL                          /00661201/ [Concomitant]
     Dosage: UNK
  5. AVODART [Concomitant]
     Dosage: UNK
  6. FORLAX                             /00754501/ [Concomitant]
     Dosage: UNK
  7. FOLIC ACID [Concomitant]
     Dosage: UNK

REACTIONS (3)
  - Pneumothorax [Fatal]
  - Pulmonary fibrosis [Unknown]
  - Pneumonia [Fatal]
